FAERS Safety Report 8088796-1 (Version None)
Quarter: 2012Q1

REPORT INFORMATION
  Report Type: 
  Country: None (occurrence: None)
  Receive Date: 20120128
  Receipt Date: 20110406
  Transmission Date: 20120608
  Serious: No
  Sender: FDA-Public Use
  Company Number: US-ABBOTT-11P-163-0717004-00

PATIENT
  Age: 83 Year
  Sex: Female

DRUGS (2)
  1. HUMIRA [Suspect]
     Indication: RHEUMATOID ARTHRITIS
     Dates: start: 20090801
  2. CELEBREX [Concomitant]
     Indication: ARTHRALGIA
     Dosage: AS NEEDED

REACTIONS (5)
  - PAIN [None]
  - DRUG INEFFECTIVE [None]
  - RASH PAPULAR [None]
  - PAIN IN EXTREMITY [None]
  - ALOPECIA [None]
